FAERS Safety Report 8215218-X (Version None)
Quarter: 2012Q1

REPORT INFORMATION
  Report Type: 
  Country: None (occurrence: None)
  Receive Date: 20120229
  Receipt Date: 20110111
  Transmission Date: 20120608
  Serious: Yes (Hospitalization, Other)
  Sender: FDA-Public Use
  Company Number: PHHY2011US02634

PATIENT
  Sex: Male

DRUGS (1)
  1. NEORAL [Suspect]
     Indication: RENAL TRANSPLANT
     Dosage: 200 MG, BID, ORAL
     Route: 048
     Dates: start: 20100825, end: 20110111

REACTIONS (2)
  - KIDNEY TRANSPLANT REJECTION [None]
  - PNEUMONIA [None]
